FAERS Safety Report 5097273-1 (Version None)
Quarter: 2006Q3

REPORT INFORMATION
  Report Type: 
  Country: None (occurrence: None)
  Receive Date: 20060906
  Receipt Date: 20060202
  Transmission Date: 20061208
  Serious: Yes (Other)
  Sender: FDA-Public Use
  Company Number: PHBS2006JP01828

PATIENT
  Age: 57 Year
  Sex: Male
  Weight: 55 kg

DRUGS (9)
  1. NEORAL [Suspect]
     Indication: MIXED CONNECTIVE TISSUE DISEASE
     Route: 048
     Dates: start: 20060301
  2. NEORAL [Suspect]
     Dosage: 200 MG/DAY
     Route: 048
     Dates: start: 20060110, end: 20060126
  3. PREDNISOLONE [Concomitant]
  4. BACTRIM [Concomitant]
     Dosage: 4 G/D
     Route: 048
     Dates: start: 20051121
  5. BENET [Concomitant]
     Dosage: 2.5 MG/D
     Route: 048
     Dates: start: 20051101
  6. MYSLEE [Concomitant]
     Route: 048
  7. GASTER [Concomitant]
     Dosage: 25 MG/D
     Route: 048
     Dates: start: 20051119, end: 20060706
  8. GASTER [Concomitant]
     Dosage: 40 MG/D
     Route: 048
     Dates: start: 20060107
  9. JUVELA NICOTINATE [Concomitant]
     Dosage: 300 MG/D
     Route: 048
     Dates: start: 20051130

REACTIONS (3)
  - DEAFNESS [None]
  - SUDDEN HEARING LOSS [None]
  - TINNITUS [None]
